FAERS Safety Report 15499905 (Version 1)
Quarter: 2018Q4

REPORT INFORMATION
  Report Type: Spontaneous
  Country: FR (occurrence: FR)
  Receive Date: 20181015
  Receipt Date: 20181015
  Transmission Date: 20190205
  Serious: Yes (Hospitalization)
  Sender: FDA-Public Use
  Company Number: PHHY2018FR121771

PATIENT
  Age: 55 Year
  Sex: Female
  Weight: 92 kg

DRUGS (2)
  1. IBUPROFEN. [Suspect]
     Active Substance: IBUPROFEN
     Indication: BRONCHITIS
     Dosage: UNK (1- 2 CP/DAY)
     Route: 048
  2. PYOSTACINE [Suspect]
     Active Substance: PRISTINAMYCIN
     Indication: BRONCHITIS
     Dosage: 3 G, QD
     Route: 048
     Dates: start: 20180913, end: 20180914

REACTIONS (4)
  - Diarrhoea [Recovering/Resolving]
  - Vomiting [Recovering/Resolving]
  - Transaminases increased [Recovering/Resolving]
  - Rash maculo-papular [Recovering/Resolving]

NARRATIVE: CASE EVENT DATE: 20180914
